FAERS Safety Report 22201203 (Version 2)
Quarter: 2023Q4

REPORT INFORMATION
  Report Type: Report from Study
  Country: US (occurrence: US)
  Receive Date: 20230412
  Receipt Date: 20231017
  Transmission Date: 20240109
  Serious: Yes (Other)
  Sender: FDA-Public Use
  Company Number: US-ABBVIE-4723997

PATIENT
  Sex: Male

DRUGS (2)
  1. RINVOQ [Suspect]
     Active Substance: UPADACITINIB
     Indication: Rheumatoid arthritis
     Route: 048
     Dates: start: 2021
  2. RINVOQ [Suspect]
     Active Substance: UPADACITINIB
     Indication: Rheumatoid arthritis
     Route: 048

REACTIONS (9)
  - Knee arthroplasty [Not Recovered/Not Resolved]
  - Fungal infection [Unknown]
  - Full blood count abnormal [Unknown]
  - Arthralgia [Not Recovered/Not Resolved]
  - Eczema [Unknown]
  - Fatigue [Not Recovered/Not Resolved]
  - Upper respiratory tract infection [Unknown]
  - Gait inability [Unknown]
  - Skin bacterial infection [Unknown]

NARRATIVE: CASE EVENT DATE: 20230101
